FAERS Safety Report 19165606 (Version 1)
Quarter: 2021Q2

REPORT INFORMATION
  Report Type: Spontaneous
  Country: US (occurrence: US)
  Receive Date: 20210421
  Receipt Date: 20210421
  Transmission Date: 20210717
  Serious: No
  Sender: FDA-Public Use
  Company Number: US-ZOGENIX INTERNATIONAL LIMITED, A WHOLLY OWNED SUBSIDIARY OF ZOGENIX, INC.-2020ZX000175

PATIENT
  Age: 14 Year
  Sex: Female
  Weight: 48.58 kg

DRUGS (5)
  1. DEPAKOTE [Concomitant]
     Active Substance: DIVALPROEX SODIUM
     Indication: PRODUCT USED FOR UNKNOWN INDICATION
     Dosage: 375 MG QAM?500 MG QHS
     Route: 065
  2. VIMPAT [Concomitant]
     Active Substance: LACOSAMIDE
     Indication: PRODUCT USED FOR UNKNOWN INDICATION
     Dosage: 200 MG QAM?250 MG QHS
     Route: 065
  3. DIASTAT [Concomitant]
     Active Substance: DIAZEPAM
     Indication: SEIZURE
     Route: 054
  4. FINTEPLA [Suspect]
     Active Substance: FENFLURAMINE
     Indication: PRODUCT USED FOR UNKNOWN INDICATION
     Route: 048
     Dates: start: 20201220
  5. ALYACEN [Concomitant]
     Active Substance: ETHINYL ESTRADIOL\NORETHINDRONE
     Indication: ORAL CONTRACEPTION
     Route: 048

REACTIONS (4)
  - Insomnia [Unknown]
  - Fatigue [Unknown]
  - Generalised tonic-clonic seizure [Unknown]
  - Mania [Unknown]

NARRATIVE: CASE EVENT DATE: 20201224
